FAERS Safety Report 19442532 (Version 1)
Quarter: 2021Q2

REPORT INFORMATION
  Report Type: Spontaneous
  Country: GB (occurrence: CN)
  Receive Date: 20210621
  Receipt Date: 20210621
  Transmission Date: 20210717
  Serious: Yes (Hospitalization, Other)
  Sender: FDA-Public Use
  Company Number: CN-ASTELLAS-2021US022176

PATIENT
  Age: 78 Year
  Sex: Male

DRUGS (9)
  1. ERLOTINIB [Suspect]
     Active Substance: ERLOTINIB
     Indication: LUNG ADENOCARCINOMA
     Route: 048
     Dates: start: 20121130, end: 201302
  2. BAI LING [Interacting]
     Active Substance: HERBALS
     Indication: LUNG ADENOCARCINOMA
     Route: 065
     Dates: start: 20121130, end: 201302
  3. UBENIMEX [Interacting]
     Active Substance: UBENIMEX
     Indication: LUNG ADENOCARCINOMA
     Route: 065
     Dates: start: 20121130, end: 201302
  4. CANDESARTAN. [Concomitant]
     Active Substance: CANDESARTAN
     Indication: BLOOD PRESSURE DECREASED
     Dosage: UNK UNK, UNKNOWN FREQ.
     Route: 065
  5. METHYLPREDNISOLONE. [Concomitant]
     Active Substance: METHYLPREDNISOLONE
     Indication: PRODUCT USED FOR UNKNOWN INDICATION
     Route: 042
  6. NIFEDIPINE. [Concomitant]
     Active Substance: NIFEDIPINE
     Indication: BLOOD PRESSURE DECREASED
     Dosage: UNK UNK, UNKNOWN FREQ.
     Route: 065
  7. XI HUANG WAN [Interacting]
     Active Substance: HERBALS
     Indication: LUNG ADENOCARCINOMA
     Route: 065
     Dates: start: 20121130, end: 201302
  8. LOPERAMIDE [Concomitant]
     Active Substance: LOPERAMIDE
     Indication: DIARRHOEA
     Dosage: UNK UNK, UNKNOWN FREQ.
     Route: 048
  9. PREDNISOLONE. [Concomitant]
     Active Substance: PREDNISOLONE
     Indication: PRODUCT USED FOR UNKNOWN INDICATION
     Route: 048

REACTIONS (2)
  - Drug interaction [Unknown]
  - Cholestasis [Unknown]
